FAERS Safety Report 23504505 (Version 1)
Quarter: 2024Q1

REPORT INFORMATION
  Report Type: Spontaneous
  Country: US (occurrence: US)
  Receive Date: 20240209
  Receipt Date: 20240209
  Transmission Date: 20240410
  Serious: No
  Sender: FDA-Public Use
  Company Number: US-IGSA-BIG0026948

PATIENT
  Age: 54 Year
  Sex: Female
  Weight: 87.075 kg

DRUGS (9)
  1. PROLASTIN-C LIQUID [Suspect]
     Active Substance: .ALPHA.1-PROTEINASE INHIBITOR HUMAN
     Indication: Alpha-1 antitrypsin deficiency
     Dosage: 5220 MILLIGRAM, Q.WK.
     Route: 042
     Dates: start: 20231208
  2. PROLASTIN-C LIQUID [Suspect]
     Active Substance: .ALPHA.1-PROTEINASE INHIBITOR HUMAN
     Dosage: 5220 MILLIGRAM, TOTAL
     Route: 042
     Dates: start: 20231217, end: 20231217
  3. CHANTIX [Concomitant]
     Active Substance: VARENICLINE TARTRATE
  4. KLONOPIN [Concomitant]
     Active Substance: CLONAZEPAM
  5. NORVASC [Concomitant]
     Active Substance: AMLODIPINE BESYLATE
  6. PAXIL [Concomitant]
     Active Substance: PAROXETINE HYDROCHLORIDE
  7. PRILOSEC [Concomitant]
     Active Substance: OMEPRAZOLE MAGNESIUM
  8. TOPROL XL [Concomitant]
     Active Substance: METOPROLOL SUCCINATE
  9. WELLBUTRIN XL [Concomitant]
     Active Substance: BUPROPION HYDROCHLORIDE
     Dosage: UNK

REACTIONS (1)
  - Fatigue [Not Recovered/Not Resolved]

NARRATIVE: CASE EVENT DATE: 20231217
